FAERS Safety Report 9371199 (Version 1)
Quarter: 2013Q3

REPORT INFORMATION
  Report Type: Spontaneous
  Country: US (occurrence: None)
  Receive Date: 20130626
  Receipt Date: 20130626
  Transmission Date: 20140515
  Serious: Yes (Hospitalization)
  Sender: FDA-Public Use
  Company Number: None

PATIENT
  Age: 46 Year
  Sex: Female
  Weight: 120.66 kg

DRUGS (1)
  1. ENOXAPARIN (LOVENOX) [Suspect]
     Indication: THROMBOSIS PROPHYLAXIS
     Dosage: 057
     Dates: start: 20130426, end: 20130428

REACTIONS (4)
  - Nausea [None]
  - Vomiting [None]
  - Pain [None]
  - Abdominal pain [None]
